FAERS Safety Report 4294359-6 (Version None)
Quarter: 2004Q1

REPORT INFORMATION
  Report Type: 
  Country: None (occurrence: None)
  Receive Date: 20040211
  Receipt Date: 20040126
  Transmission Date: 20041129
  Serious: Yes (Death, Life-Threatening)
  Sender: FDA-Public Use
  Company Number: US_030796404

PATIENT
  Age: 48 Year
  Sex: Male
  Weight: 89 kg

DRUGS (5)
  1. ZYPREXA [Suspect]
     Indication: SCHIZOPHRENIA
     Dosage: 15 MG/DAY
     Dates: start: 20021118, end: 20030624
  2. GEMFIBROZIL [Concomitant]
  3. AMLOSIPINE BESILATE [Concomitant]
  4. HYDROCHLOROTHIAZIDE [Concomitant]
  5. BENZOTROPINE BESILATE [Concomitant]

REACTIONS (26)
  - ABDOMINAL DISTENSION [None]
  - BRAIN OEDEMA [None]
  - BRAIN SCAN ABNORMAL [None]
  - CARDIAC ARREST [None]
  - COMA [None]
  - DIABETIC KETOACIDOSIS [None]
  - ELECTROCARDIOGRAM QT PROLONGED [None]
  - ELECTROCARDIOGRAM ST SEGMENT ABNORMAL [None]
  - FLATULENCE [None]
  - GASTROINTESTINAL OEDEMA [None]
  - HEPATIC ENZYME INCREASED [None]
  - HYPERGLYCAEMIA [None]
  - HYPOKALAEMIA [None]
  - HYPOTENSION [None]
  - HYPOVOLAEMIA [None]
  - INFECTION [None]
  - INTESTINAL INFARCTION [None]
  - LIVER DISORDER [None]
  - MULTI-ORGAN FAILURE [None]
  - PULSE ABSENT [None]
  - RENAL FAILURE ACUTE [None]
  - RESPIRATORY ARREST [None]
  - RESPIRATORY FAILURE [None]
  - RHABDOMYOLYSIS [None]
  - SINUS TACHYCARDIA [None]
  - VENTRICULAR FIBRILLATION [None]
